FAERS Safety Report 5062686-0 (Version None)
Quarter: 2006Q3

REPORT INFORMATION
  Report Type: 
  Country: None (occurrence: None)
  Receive Date: 20060703
  Receipt Date: 20051026
  Transmission Date: 20061208
  Serious: No
  Sender: FDA-Public Use
  Company Number: 2005S1010704

PATIENT
  Age: 79 Year
  Sex: Female

DRUGS (12)
  1. CLOZAPINE [Suspect]
     Indication: SCHIZOPHRENIA, PARANOID TYPE
     Dosage: SEE IMAGE
     Route: 048
     Dates: start: 20020101
  2. ACETAMINOPHEN [Concomitant]
  3. BENZTROPEINE [Concomitant]
  4. DIPHENHYDRAMINE [Concomitant]
  5. FLUVOXAMINE MALEATE [Concomitant]
  6. METOCLOPRAMIDE HYDROCHLORIDE [Concomitant]
  7. VITAMINS NOS [Concomitant]
  8. RANITIDINE [Concomitant]
  9. RISPERIDONE [Concomitant]
  10. SENNA FRUIT [Concomitant]
  11. TRIHEXYPHENIDYL HCL [Concomitant]
  12. OLANZAPINE [Concomitant]

REACTIONS (1)
  - GRANULOCYTOPENIA [None]
